FAERS Safety Report 23680924 (Version 3)
Quarter: 2024Q2

REPORT INFORMATION
  Report Type: Spontaneous
  Country: US (occurrence: None)
  Receive Date: 20240328
  Receipt Date: 20240514
  Transmission Date: 20240716
  Serious: Yes (Other)
  Sender: FDA-Public Use
  Company Number: US-ROCHE-3515703

PATIENT
  Age: 32 Year
  Sex: Female
  Weight: 72.64 kg

DRUGS (8)
  1. OCREVUS [Suspect]
     Active Substance: OCRELIZUMAB
     Indication: Relapsing-remitting multiple sclerosis
     Dosage: LAST OCRELIZUMAB DOSE (ROUND 2) 09/AUG/2023 (2 VIAL)
     Route: 042
     Dates: start: 20230308
  2. LANSOPRAZOLE [Concomitant]
     Active Substance: LANSOPRAZOLE
     Dosage: 1 CAPSULE EVERY MORNING 30 MINUTES BEFORE FIRST MEAL ON EMPTY STOMACH DAILY
     Route: 048
     Dates: start: 20190829, end: 20190829
  3. OMEPRAZOLE [Concomitant]
     Active Substance: DONEPEZIL HYDROCHLORIDE\OMEPRAZOLE\OMEPRAZOLE MAGNESIUM
     Route: 048
     Dates: start: 20190829
  4. VITAMIN D3 [Concomitant]
     Active Substance: CHOLECALCIFEROL
  5. GABAPENTIN [Concomitant]
     Active Substance: GABAPENTIN
  6. CYCLOBENZAPRINE [Concomitant]
     Active Substance: CYCLOBENZAPRINE
  7. MEDROL [Concomitant]
     Active Substance: METHYLPREDNISOLONE
  8. STRATTERA [Concomitant]
     Active Substance: ATOMOXETINE HYDROCHLORIDE

REACTIONS (19)
  - Bronchitis [Recovered/Resolved]
  - Gingivitis [Recovered/Resolved]
  - Bronchitis [Recovered/Resolved]
  - Gingivitis [Recovered/Resolved]
  - Vitamin D decreased [Unknown]
  - Tinnitus [Unknown]
  - Photosensitivity reaction [Unknown]
  - Heart rate irregular [Unknown]
  - Dyspnoea [Unknown]
  - Depression [Unknown]
  - Blood creatinine increased [Unknown]
  - Lymphadenopathy [Unknown]
  - Pain [Unknown]
  - Chills [Unknown]
  - Gastrooesophageal reflux disease [Unknown]
  - Abdominal pain upper [Unknown]
  - Nausea [Unknown]
  - Neck pain [Unknown]
  - Back pain [Unknown]

NARRATIVE: CASE EVENT DATE: 20240210
